FAERS Safety Report 25920957 (Version 3)
Quarter: 2025Q4

REPORT INFORMATION
  Report Type: Spontaneous
  Country: EU (occurrence: EU)
  Receive Date: 20251014
  Receipt Date: 20251104
  Transmission Date: 20260118
  Serious: Yes (Other)
  Sender: MYLAN
  Company Number: EU-BRISTOL-MYERS SQUIBB COMPANY-2025-133507

PATIENT
  Age: 21 Year
  Sex: Female
  Weight: 55 kg

DRUGS (10)
  1. LENALIDOMIDE [Suspect]
     Active Substance: LENALIDOMIDE
     Indication: Plasma cell myeloma
     Dosage: UNK
  2. BENDAMUSTINE [Suspect]
     Active Substance: BENDAMUSTINE
     Indication: Plasma cell myeloma
     Dosage: UNK
  3. RITUXIMAB [Suspect]
     Active Substance: RITUXIMAB
     Indication: Plasma cell myeloma
     Dosage: UNK
  4. RITUXIMAB [Suspect]
     Active Substance: RITUXIMAB
     Indication: Castleman^s disease
  5. BORTEZOMIB [Suspect]
     Active Substance: BORTEZOMIB
     Indication: Plasma cell myeloma
     Dosage: UNK
  6. BORTEZOMIB [Suspect]
     Active Substance: BORTEZOMIB
     Indication: Hyperviscosity syndrome
  7. DEXAMETHASONE [Suspect]
     Active Substance: DEXAMETHASONE
     Indication: Plasma cell myeloma
     Dosage: 40 MILLIGRAM, QW (FOR THE FIRST 2 WEEKS)
  8. DEXAMETHASONE [Suspect]
     Active Substance: DEXAMETHASONE
     Indication: Hyperviscosity syndrome
     Dosage: 20 MILLIGRAM, QW (REDUCED TO 20 MG AFTER TWO WEEKS)
  9. DARATUMUMAB [Suspect]
     Active Substance: DARATUMUMAB
     Indication: Plasma cell myeloma
     Dosage: 1800 MILLIGRAM, QW (1X A WEEK)
  10. DARATUMUMAB [Suspect]
     Active Substance: DARATUMUMAB
     Indication: Hyperviscosity syndrome

REACTIONS (2)
  - Neutropenia [Recovered/Resolved]
  - Drug ineffective [Unknown]
